FAERS Safety Report 9061613 (Version 1)
Quarter: 2013Q1

REPORT INFORMATION
  Report Type: Spontaneous
  Country: US (occurrence: None)
  Receive Date: 20130208
  Receipt Date: 20130208
  Transmission Date: 20140127
  Serious: Yes (Hospitalization)
  Sender: FDA-Public Use
  Company Number: None

PATIENT
  Age: 65 Year
  Sex: Male
  Weight: 134 kg

DRUGS (2)
  1. NOVOSEVEN [Suspect]
     Indication: HAEMOPHILIA
     Dosage: EVERY 6 HOURS
     Route: 040
     Dates: start: 20120401, end: 20120402
  2. NOVOSEVEN [Suspect]
     Indication: HAEMOPHILIA
     Dosage: EVERY 6 HOURS
     Route: 040
     Dates: start: 20120401, end: 20120402

REACTIONS (10)
  - Malaise [None]
  - Aphasia [None]
  - Aphasia [None]
  - Hemiparesis [None]
  - Sensation of heaviness [None]
  - Transient ischaemic attack [None]
  - Cerebrovascular accident [None]
  - Carotid artery stenosis [None]
  - Cerebral small vessel ischaemic disease [None]
  - Thrombosis [None]
